FAERS Safety Report 13892276 (Version 1)
Quarter: 2017Q3

REPORT INFORMATION
  Report Type: Spontaneous
  Country: US (occurrence: US)
  Receive Date: 20170822
  Receipt Date: 20170822
  Transmission Date: 20171127
  Serious: No
  Sender: FDA-Public Use
  Company Number: US-ENDO PHARMACEUTICALS INC-2016-007004

PATIENT
  Age: 59 Year
  Sex: Male
  Weight: 88.89 kg

DRUGS (1)
  1. TESTOPEL [Suspect]
     Active Substance: TESTOSTERONE
     Indication: PRODUCT USED FOR UNKNOWN INDICATION
     Dosage: UNK UNKNOWN, UNKNOWN
     Route: 065
     Dates: start: 20160909, end: 20161013

REACTIONS (2)
  - Prescribed overdose [Recovered/Resolved]
  - Expulsion of medication [Recovered/Resolved]

NARRATIVE: CASE EVENT DATE: 20160909
